FAERS Safety Report 7771281-1 (Version None)
Quarter: 2011Q3

REPORT INFORMATION
  Report Type: 
  Country: None (occurrence: None)
  Receive Date: 20110922
  Receipt Date: 20110919
  Transmission Date: 20111222
  Serious: Yes (Other)
  Sender: FDA-Public Use
  Company Number: GB-PFIZER INC-2011195051

PATIENT
  Age: 76 Year
  Sex: Male

DRUGS (7)
  1. AMLODIPINE [Concomitant]
     Dosage: 5 MG, UNK
  2. BENDROFLUAZIDE [Concomitant]
     Dosage: UNK
  3. MIRTAZAPINE [Suspect]
     Dosage: 60 MG, UNK
  4. LORAZEPAM [Concomitant]
     Dosage: 1 MG, UNK
  5. MIRTAZAPINE [Suspect]
     Dosage: 45 MG, UNK
  6. EFFEXOR XR [Suspect]
     Dosage: 75 MG, UNK
  7. MIRTAZAPINE [Suspect]
     Dosage: 30 MG, UNK

REACTIONS (3)
  - BLOOD SODIUM DECREASED [None]
  - CIRCULATORY COLLAPSE [None]
  - HEAD INJURY [None]
